FAERS Safety Report 18334058 (Version 1)
Quarter: 2020Q4

REPORT INFORMATION
  Report Type: Report from Study
  Country: US (occurrence: US)
  Receive Date: 20201001
  Receipt Date: 20201001
  Transmission Date: 20210113
  Serious: Yes (Life-Threatening)
  Sender: FDA-Public Use
  Company Number: US-PFIZER INC-2020370272

PATIENT
  Age: 10 Year
  Sex: Male

DRUGS (6)
  1. MEPERIDINE HCL [Interacting]
     Active Substance: MEPERIDINE HYDROCHLORIDE
     Dosage: UNK
  2. MESNA. [Interacting]
     Active Substance: MESNA
     Indication: NEPHROBLASTOMA
     Dosage: 400 MG/M2, DAILY (AT FOUR AND SIX HOURS AFTER IFOSFAMIDE)
  3. IFOSFAMIDE. [Interacting]
     Active Substance: IFOSFAMIDE
     Indication: NEPHROBLASTOMA
     Dosage: 1600 MG/M2, DAILY (OVER 15 MINUTES, ADMINISTERED AT 21- TO 28-DAY INTERVALS)
     Route: 042
  4. HYDROXYZINE PAMOATE. [Suspect]
     Active Substance: HYDROXYZINE PAMOATE
     Dosage: UNK
  5. DEXTROSE. [Concomitant]
     Active Substance: DEXTROSE
     Dosage: 1000 ML/M^2, IN 1/3 NORMAL SALINE
  6. ACETAMINOPHEN. [Interacting]
     Active Substance: ACETAMINOPHEN
     Dosage: UNK

REACTIONS (3)
  - Drug interaction [Unknown]
  - Deafness transitory [Unknown]
  - Neurotoxicity [Unknown]
